FAERS Safety Report 10154572 (Version 1)
Quarter: 2014Q2

REPORT INFORMATION
  Report Type: Report from Study
  Country: CN (occurrence: CN)
  Receive Date: 20140506
  Receipt Date: 20140506
  Transmission Date: 20141212
  Serious: Yes (Death)
  Sender: FDA-Public Use
  Company Number: CN-ROCHE-1395347

PATIENT
  Sex: 0

DRUGS (9)
  1. MYCOPHENOLATE MOFETIL [Suspect]
     Indication: PROPHYLAXIS AGAINST TRANSPLANT REJECTION
     Route: 065
  2. TACROLIMUS [Suspect]
     Indication: PROPHYLAXIS AGAINST TRANSPLANT REJECTION
     Dosage: POSTOPERATIVE 24 H AT A STARTING DOSE OF 0.06-0.08 MG/KG PER DAY, AND THE TROUGH CONCENTRATION WAS M
     Route: 065
  3. METHYLPREDNISOLONE [Suspect]
     Indication: PROPHYLAXIS AGAINST TRANSPLANT REJECTION
     Dosage: 5 - 8 MG/KG, INTRAOPERATIVELY
     Route: 041
  4. METHYLPREDNISOLONE [Suspect]
     Dosage: STARTING DOSE OF 120 MG/D, WHICH WAS REDUCED BY 20 MG EVERY DAY TO 20 MG/D
     Route: 042
  5. METHYLPREDNISOLONE [Suspect]
     Dosage: STARTING DOSE OF 120 MG/D, WHICH WAS REDUCED BY 20 MG EVERY DAY TO 20 MG/D
     Route: 042
  6. METHYLPREDNISOLONE [Suspect]
     Route: 048
  7. METHYLPREDNISOLONE [Suspect]
     Dosage: WHICH WAS REDUCED BY 4 MG EACH WEEK
     Route: 048
  8. METHYLPREDNISOLONE [Suspect]
     Dosage: MAINTAINED FOR 1 MONTH
     Route: 048
  9. BASILIXIMAB [Suspect]
     Indication: PROPHYLAXIS AGAINST TRANSPLANT REJECTION
     Dosage: 20 MG PER DAY INTRAOPERATIVELY ADMINISTERED BASILIXIMAB AND POST OPERATIVELY ON DAY 4.
     Route: 065

REACTIONS (2)
  - Hepatic cancer recurrent [Fatal]
  - Lung infection [Unknown]
